FAERS Safety Report 9621672 (Version 1)
Quarter: 2013Q4

REPORT INFORMATION
  Report Type: Spontaneous
  Country: US (occurrence: None)
  Receive Date: 20131010
  Receipt Date: 20131010
  Transmission Date: 20140711
  Serious: Yes (Death)
  Sender: FDA-Public Use
  Company Number: 2013AP008524

PATIENT
  Age: 59 Year
  Sex: Male

DRUGS (2)
  1. METFORMIN HCL [Suspect]
     Route: 048
  2. ETHANOL [Suspect]
     Route: 048

REACTIONS (2)
  - Completed suicide [None]
  - Alcohol use [None]
